FAERS Safety Report 19016969 (Version 1)
Quarter: 2021Q1

REPORT INFORMATION
  Report Type: Spontaneous
  Country: NL (occurrence: NL)
  Receive Date: 20210317
  Receipt Date: 20210317
  Transmission Date: 20210420
  Serious: Yes (Disabling)
  Sender: FDA-Public Use
  Company Number: NL-CELLTRION INC.-2021NL003188

PATIENT

DRUGS (6)
  1. INFLIXIMAB (UNKNOWN) [Suspect]
     Active Substance: INFLIXIMAB
     Dosage: ESCALATED TO 10 MG/KG EVERY 8 WEEKS
  2. MESALAMINE. [Suspect]
     Active Substance: MESALAMINE
     Indication: COLITIS ULCERATIVE
  3. METHOTREXATE. [Concomitant]
     Active Substance: METHOTREXATE
     Indication: VASCULITIS
     Dosage: 20 MG, 1/WEEK
     Route: 048
  4. INFLIXIMAB (UNKNOWN) [Suspect]
     Active Substance: INFLIXIMAB
     Indication: COLITIS ULCERATIVE
     Dosage: THREE PLANNED INDUCTION DOSES OVER 6 WEEKS (WEEK 0?2?6)  FOLLOWED BY MAINTENANCE THERAPY EVERY 8 WEE
     Route: 042
  5. AZATHIOPRINE. [Suspect]
     Active Substance: AZATHIOPRINE
     Indication: COLITIS ULCERATIVE
  6. INFLIXIMAB (UNKNOWN) [Suspect]
     Active Substance: INFLIXIMAB
     Dosage: THREE INDUCTION DOSES AT 5 MG/KG OVER 6 WEEKS

REACTIONS (4)
  - Drug level below therapeutic [Recovered/Resolved]
  - Microscopic polyangiitis [Recovered/Resolved with Sequelae]
  - Overdose [Unknown]
  - C-reactive protein increased [Recovered/Resolved]
